FAERS Safety Report 6142782-7 (Version None)
Quarter: 2009Q2

REPORT INFORMATION
  Report Type: 
  Country: None (occurrence: None)
  Receive Date: 20090403
  Receipt Date: 20090323
  Transmission Date: 20091009
  Serious: Yes (Hospitalization)
  Sender: FDA-Public Use
  Company Number: US-BAYER-200915770NA

PATIENT
  Age: 54 Year
  Sex: Female
  Weight: 113 kg

DRUGS (4)
  1. SORAFENIB [Suspect]
     Indication: BREAST CANCER
     Dosage: TOTAL DAILY DOSE: 800 MG  UNIT DOSE: 200 MG
     Route: 048
     Dates: end: 20090309
  2. DOXORUBICIN HCL [Suspect]
     Indication: BREAST CANCER
     Dates: start: 20080108
  3. CYCLOPHOSPHAMIDE [Suspect]
     Indication: BREAST CANCER
     Dates: start: 20080108
  4. PACLITAXEL [Suspect]
     Indication: BREAST CANCER

REACTIONS (1)
  - BARTHOLIN'S ABSCESS [None]
